FAERS Safety Report 9613367 (Version 1)
Quarter: 2013Q4

REPORT INFORMATION
  Report Type: Spontaneous
  Country: ZA (occurrence: None)
  Receive Date: 20131008
  Receipt Date: 20131008
  Transmission Date: 20140711
  Serious: Yes (Death)
  Sender: FDA-Public Use
  Company Number: B0927202A

PATIENT
  Age: 50 Year
  Sex: Female

DRUGS (5)
  1. LAMIVUDINE [Suspect]
     Indication: HIV INFECTION
     Dates: start: 201003
  2. EFAVIRENZ [Suspect]
     Indication: HIV INFECTION
     Dates: start: 201003
  3. STAVUDINE [Suspect]
     Indication: HIV INFECTION
     Dates: start: 201003
  4. TENOFOVIR [Suspect]
     Indication: HIV INFECTION
  5. ANTINEOPLASTIC AGENT [Concomitant]

REACTIONS (8)
  - Mycosis fungoides stage IV [None]
  - Disease progression [None]
  - Swelling face [None]
  - Nodule [None]
  - Neoplasm skin [None]
  - Lymphadenopathy [None]
  - Dermatitis exfoliative [None]
  - General physical health deterioration [None]
